FAERS Safety Report 15846290 (Version 1)
Quarter: 2019Q1

REPORT INFORMATION
  Report Type: Spontaneous
  Country: US (occurrence: US)
  Receive Date: 20190120
  Receipt Date: 20190120
  Transmission Date: 20190417
  Serious: Yes (Death)
  Sender: FDA-Public Use
  Company Number: US-OTSUKA-2018_023902

PATIENT
  Sex: Male

DRUGS (2)
  1. ABILIFY [Suspect]
     Active Substance: ARIPIPRAZOLE
     Indication: MAJOR DEPRESSION
     Dosage: 2 MG, QD
     Route: 065
     Dates: end: 20160525
  2. ABILIFY [Suspect]
     Active Substance: ARIPIPRAZOLE
     Indication: ANXIETY

REACTIONS (8)
  - Obsessive-compulsive disorder [Unknown]
  - Product use in unapproved indication [Unknown]
  - Gambling disorder [Recovered/Resolved]
  - Economic problem [Unknown]
  - Eating disorder [Not Recovered/Not Resolved]
  - Death [Fatal]
  - Impulse-control disorder [Unknown]
  - Compulsive shopping [Not Recovered/Not Resolved]

NARRATIVE: CASE EVENT DATE: 2014
